FAERS Safety Report 6693822-8 (Version None)
Quarter: 2010Q2

REPORT INFORMATION
  Report Type: 
  Country: None (occurrence: None)
  Receive Date: 20100421
  Receipt Date: 20100408
  Transmission Date: 20101027
  Serious: Yes (Hospitalization)
  Sender: FDA-Public Use
  Company Number: 009983

PATIENT
  Sex: Female
  Weight: 64.8 kg

DRUGS (8)
  1. LACOSAMIDE [Suspect]
     Indication: CONVULSION
     Dosage: (50 MG BID, FOR ^1-2 WEEKS^ ORAL), (100 MG BID ORAL), (150 MG BID ORAL), (^TAKING 1.5 OF THE 150 MG
     Route: 048
     Dates: start: 20091201
  2. LACOSAMIDE [Suspect]
     Indication: CONVULSION
     Dosage: (50 MG BID, FOR ^1-2 WEEKS^ ORAL), (100 MG BID ORAL), (150 MG BID ORAL), (^TAKING 1.5 OF THE 150 MG
     Route: 048
     Dates: start: 20091201
  3. LACOSAMIDE [Suspect]
     Indication: CONVULSION
     Dosage: (50 MG BID, FOR ^1-2 WEEKS^ ORAL), (100 MG BID ORAL), (150 MG BID ORAL), (^TAKING 1.5 OF THE 150 MG
     Route: 048
     Dates: start: 20091201
  4. LACOSAMIDE [Suspect]
     Indication: CONVULSION
     Dosage: (50 MG BID, FOR ^1-2 WEEKS^ ORAL), (100 MG BID ORAL), (150 MG BID ORAL), (^TAKING 1.5 OF THE 150 MG
     Route: 048
     Dates: start: 20091201
  5. KEPPRA [Suspect]
     Indication: CONVULSION
     Dosage: (UNKNOWN DOSE (MG) TWICE DAILY ORAL)
     Route: 048
     Dates: start: 20091010, end: 20091130
  6. MEBARAL [Concomitant]
  7. KLONOPIN [Concomitant]
  8. UNKNOWN [Concomitant]

REACTIONS (6)
  - DIPLOPIA [None]
  - FATIGUE [None]
  - INSOMNIA [None]
  - MEMORY IMPAIRMENT [None]
  - NIGHTMARE [None]
  - VISION BLURRED [None]
